FAERS Safety Report 4834614-1 (Version None)
Quarter: 2005Q4

REPORT INFORMATION
  Report Type: 
  Country: None (occurrence: None)
  Receive Date: 20051122
  Receipt Date: 20050518
  Transmission Date: 20060501
  Serious: No
  Sender: FDA-Public Use
  Company Number: US-BRISTOL-MYERS SQUIBB COMPANY-12973467

PATIENT
  Age: 6 Decade
  Sex: Male

DRUGS (8)
  1. PRAVACHOL [Suspect]
     Indication: HYPERLIPIDAEMIA
  2. ZETIA [Concomitant]
  3. NIASPAN [Concomitant]
  4. FOLTX [Concomitant]
  5. SYNTHROID [Concomitant]
  6. CYTOMEL [Concomitant]
  7. MULTI-VITAMIN [Concomitant]
  8. ASPIRIN [Concomitant]

REACTIONS (3)
  - ANTINUCLEAR ANTIBODY POSITIVE [None]
  - LUPUS-LIKE SYNDROME [None]
  - MYOPATHY [None]
